FAERS Safety Report 5597185-0 (Version None)
Quarter: 2008Q1

REPORT INFORMATION
  Report Type: 
  Country: None (occurrence: None)
  Receive Date: 20080121
  Receipt Date: 20080110
  Transmission Date: 20080703
  Serious: Yes (Hospitalization)
  Sender: FDA-Public Use
  Company Number: FR-JNJFOC-20080102350

PATIENT
  Sex: Male

DRUGS (9)
  1. DURAGESIC-100 [Suspect]
     Indication: PAIN
     Route: 062
  2. BACTRIM [Suspect]
     Indication: DRUG USE FOR UNKNOWN INDICATION
     Route: 048
     Dates: start: 20070822, end: 20071203
  3. ZYVOX [Suspect]
     Indication: DRUG USE FOR UNKNOWN INDICATION
     Route: 048
     Dates: start: 20071004, end: 20071203
  4. ROCEPHIN [Suspect]
     Indication: DRUG USE FOR UNKNOWN INDICATION
     Route: 042
     Dates: start: 20070826, end: 20071203
  5. VIBRAMYCINE [Suspect]
     Indication: DRUG USE FOR UNKNOWN INDICATION
     Route: 048
     Dates: start: 20070822, end: 20071004
  6. THALIDOMIDE [Suspect]
     Indication: DRUG USE FOR UNKNOWN INDICATION
     Route: 048
  7. ARANESP [Suspect]
     Indication: DRUG USE FOR UNKNOWN INDICATION
     Route: 058
  8. KARDEGIC [Suspect]
     Indication: DRUG USE FOR UNKNOWN INDICATION
     Route: 048
  9. SPECIAFOLDINE [Suspect]
     Indication: DRUG USE FOR UNKNOWN INDICATION
     Route: 048

REACTIONS (1)
  - HEPATITIS CHOLESTATIC [None]
